FAERS Safety Report 6521824-0 (Version None)
Quarter: 2009Q4

REPORT INFORMATION
  Report Type: 
  Country: None (occurrence: None)
  Receive Date: 20091229
  Receipt Date: 20091229
  Transmission Date: 20100525
  Serious: Yes (Disabling)
  Sender: FDA-Public Use
  Company Number: None

PATIENT
  Sex: Male
  Weight: 78.9259 kg

DRUGS (1)
  1. LEVAQUIN [Suspect]
     Indication: URINARY TRACT INFECTION
     Dosage: 500MG PO Q DAILY ORAL
     Route: 048
     Dates: start: 20090709, end: 20090711

REACTIONS (2)
  - IMPAIRED WORK ABILITY [None]
  - TENDON DISORDER [None]
